FAERS Safety Report 25701117 (Version 5)
Quarter: 2025Q4

REPORT INFORMATION
  Report Type: Report from Study
  Country: KR (occurrence: KR)
  Receive Date: 20250819
  Receipt Date: 20251126
  Transmission Date: 20260118
  Serious: Yes (Other)
  Sender: ASTELLAS
  Company Number: KR-ASTELLAS-2025-AER-044669

PATIENT
  Age: 64 Year
  Sex: Male
  Weight: 69 kg

DRUGS (29)
  1. ENFORTUMAB VEDOTIN-EJFV [Suspect]
     Active Substance: ENFORTUMAB VEDOTIN-EJFV
     Indication: Transitional cell carcinoma metastatic
     Dosage: 1.15 MG/KG, TOTAL DOSE 80MG, C1
     Route: 042
     Dates: start: 20240215
  2. ENFORTUMAB VEDOTIN-EJFV [Suspect]
     Active Substance: ENFORTUMAB VEDOTIN-EJFV
     Dosage: 1.15 MG/KG, TOTAL DOSE 80MG, C1
     Route: 042
     Dates: start: 20240222
  3. ENFORTUMAB VEDOTIN-EJFV [Suspect]
     Active Substance: ENFORTUMAB VEDOTIN-EJFV
     Dosage: 1.15 MG/KG, TOTAL DOSE 80MG, C1
     Route: 042
     Dates: start: 20240229
  4. ENFORTUMAB VEDOTIN-EJFV [Suspect]
     Active Substance: ENFORTUMAB VEDOTIN-EJFV
     Dosage: 1.15 MG/KG, TOTAL DOSE 80MG, C2
     Route: 042
     Dates: start: 20240314
  5. ENFORTUMAB VEDOTIN-EJFV [Suspect]
     Active Substance: ENFORTUMAB VEDOTIN-EJFV
     Dosage: 1.15 MG/KG, TOTAL DOSE 80MG, C2
     Route: 042
     Dates: start: 20240321
  6. ENFORTUMAB VEDOTIN-EJFV [Suspect]
     Active Substance: ENFORTUMAB VEDOTIN-EJFV
     Dosage: 1.15 MG/KG, TOTAL DOSE 80MG, C3
     Route: 042
     Dates: start: 20240411
  7. ENFORTUMAB VEDOTIN-EJFV [Suspect]
     Active Substance: ENFORTUMAB VEDOTIN-EJFV
     Dosage: 1.15 MG/KG, TOTAL DOSE 80MG, C3
     Route: 042
     Dates: start: 20240424
  8. MIRABEGRON [Concomitant]
     Active Substance: MIRABEGRON
     Indication: Prostate cancer
     Route: 048
     Dates: start: 20171212
  9. BIOTOP D FORTE [Concomitant]
     Indication: Prophylaxis
     Route: 048
     Dates: start: 20230504
  10. ACETAMINOPHEN\TRAMADOL HYDROCHLORIDE [Concomitant]
     Active Substance: ACETAMINOPHEN\TRAMADOL HYDROCHLORIDE
     Indication: Bone pain
     Route: 048
     Dates: start: 20240208
  11. CHOLINE ALFOSCERATE [Concomitant]
     Active Substance: CHOLINE ALFOSCERATE
     Indication: Cerebral infarction
     Route: 048
     Dates: start: 20160311
  12. RABIET [Concomitant]
     Indication: Gastritis prophylaxis
     Route: 048
     Dates: start: 20220829
  13. ALPRAZOLAM [Concomitant]
     Active Substance: ALPRAZOLAM
     Indication: Insomnia
     Route: 048
     Dates: start: 20150325
  14. LITORVAZET [Concomitant]
     Indication: Cerebral infarction
     Dosage: 10/20MG
     Route: 048
     Dates: start: 20230831
  15. CLOPIDOGREL BISULFATE [Concomitant]
     Active Substance: CLOPIDOGREL BISULFATE
     Indication: Cerebral infarction
     Route: 048
     Dates: start: 20150413
  16. DIOVAN [Concomitant]
     Active Substance: VALSARTAN
     Indication: Hypertension
     Route: 048
     Dates: start: 20221116, end: 20240328
  17. SETOPEN 8 HOURS ER [Concomitant]
     Indication: Prophylactic chemotherapy
     Dosage: ER TABLET
     Route: 048
     Dates: start: 20240215, end: 20240424
  18. PENIRAMIN [Concomitant]
     Indication: Prophylactic chemotherapy
     Route: 042
     Dates: start: 20240215, end: 20240228
  19. PENIRAMIN [Concomitant]
     Indication: Nausea
     Route: 042
     Dates: start: 20240229
  20. ZINC S [Concomitant]
     Indication: Mineral supplementation
     Dosage: 1 VIAL AND 1 AMPOULE EACH CONTAIN 10 MG
     Route: 042
     Dates: start: 20240213, end: 20240503
  21. VITAMINS [Concomitant]
     Active Substance: VITAMINS
     Indication: Vitamin supplementation
     Route: 042
     Dates: start: 20240213
  22. BC MORPHINE SULFATE [Concomitant]
     Indication: Bone pain
     Dosage: AMP
     Route: 042
     Dates: start: 20240220, end: 20240315
  23. KORUS CEFOTAXIME SODIUM [Concomitant]
     Indication: Infection prophylaxis
     Route: 042
     Dates: start: 20240222, end: 20240222
  24. OXYCODONE HYDROCHLORIDE [Concomitant]
     Active Substance: OXYCODONE HYDROCHLORIDE
     Indication: Bladder pain
     Route: 048
     Dates: start: 20240223
  25. HARMONILAN [Concomitant]
     Indication: Nutritional supplementation
     Route: 048
     Dates: start: 20240227, end: 20240228
  26. BENZYDAMINE HYDROCHLORIDE [Concomitant]
     Active Substance: BENZYDAMINE HYDROCHLORIDE
     Indication: Prophylaxis
     Dosage: GARGLE
     Route: 042
     Dates: start: 20240301, end: 20240301
  27. LORELIN DEPOT [Concomitant]
     Indication: Prostate cancer
     Route: 058
     Dates: start: 20240304
  28. PROFA [Concomitant]
     Indication: Bone pain
     Dosage: VIAL
     Route: 042
     Dates: start: 20240305, end: 20240305
  29. HANDOK BACLOFEN [Concomitant]
     Indication: Bone pain
     Route: 048
     Dates: start: 20240320, end: 20240324

REACTIONS (7)
  - Prostate cancer [Not Recovered/Not Resolved]
  - Delirium [Recovering/Resolving]
  - Constipation [Not Recovered/Not Resolved]
  - Decreased appetite [Not Recovered/Not Resolved]
  - Nausea [Not Recovered/Not Resolved]
  - Diarrhoea [Recovered/Resolved]
  - Cough [Recovered/Resolved]

NARRATIVE: CASE EVENT DATE: 20240223
